FAERS Safety Report 10560540 (Version 2)
Quarter: 2021Q1

REPORT INFORMATION
  Report Type: Spontaneous
  Country: US (occurrence: US)
  Receive Date: 20141103
  Receipt Date: 20210318
  Transmission Date: 20210419
  Serious: No
  Sender: FDA-Public Use
  Company Number: US-SA-2014SA081746

PATIENT
  Age: 57 Year
  Sex: Male

DRUGS (1)
  1. LUMIZYME [Suspect]
     Active Substance: ALGLUCOSIDASE ALFA
     Indication: GLYCOGEN STORAGE DISEASE TYPE II
     Dosage: UNK UNK,QOW
     Route: 042
     Dates: start: 201007

REACTIONS (5)
  - Condition aggravated [Unknown]
  - Pyrexia [Unknown]
  - Rash [Unknown]
  - Arthropod bite [Unknown]
  - Myalgia [Unknown]

NARRATIVE: CASE EVENT DATE: 20140604
